FAERS Safety Report 10450091 (Version 1)
Quarter: 2014Q3

REPORT INFORMATION
  Report Type: Report from Study
  Country: US (occurrence: US)
  Receive Date: 20140912
  Receipt Date: 20140912
  Transmission Date: 20150326
  Serious: Yes (Hospitalization)
  Sender: FDA-Public Use
  Company Number: PHEH2014US017811

PATIENT
  Sex: Female

DRUGS (1)
  1. SIGNIFOR [Suspect]
     Active Substance: PASIREOTIDE

REACTIONS (9)
  - Weight decreased [Not Recovered/Not Resolved]
  - Decreased appetite [Not Recovered/Not Resolved]
  - Asthenia [Not Recovered/Not Resolved]
  - Dysgeusia [Not Recovered/Not Resolved]
  - Boredom [Not Recovered/Not Resolved]
  - Eating disorder [Not Recovered/Not Resolved]
  - Blood glucose increased [Unknown]
  - Dry mouth [Not Recovered/Not Resolved]
  - Crying [Unknown]
